FAERS Safety Report 10757791 (Version 1)
Quarter: 2015Q1

REPORT INFORMATION
  Report Type: Spontaneous
  Country: US (occurrence: US)
  Receive Date: 20150203
  Receipt Date: 20150203
  Transmission Date: 20150721
  Serious: Yes (Death)
  Sender: FDA-Public Use
  Company Number: US-CUBIST PHARMACEUTICALS, INC.-2015CBST000135

PATIENT

DRUGS (2)
  1. SULFAMETHOXAZOLE AND TRIMETHOPRIM [Suspect]
     Active Substance: SULFAMETHOXAZOLE\TRIMETHOPRIM
     Indication: STAPHYLOCOCCAL BACTERAEMIA
     Dosage: 320 MG, Q24H
     Route: 042
  2. CUBICIN [Suspect]
     Active Substance: DAPTOMYCIN
     Indication: STAPHYLOCOCCAL INFECTION
     Dosage: MEDIAN DOSE WAS 9.9 MG/KG (IQR 8.8 TO 10.0 MG/KG), ONCE DAILY
     Route: 042

REACTIONS (2)
  - Acute myocardial infarction [Fatal]
  - Antimicrobial susceptibility test resistant [Unknown]
